FAERS Safety Report 25211678 (Version 1)
Quarter: 2025Q2

REPORT INFORMATION
  Report Type: Spontaneous
  Country: PT (occurrence: PT)
  Receive Date: 20250418
  Receipt Date: 20250418
  Transmission Date: 20250716
  Serious: Yes (Other)
  Sender: ELI LILLY AND COMPANY
  Company Number: PT-ELI_LILLY_AND_COMPANY-PT202504008193

PATIENT
  Sex: Female

DRUGS (2)
  1. BARICITINIB [Suspect]
     Active Substance: BARICITINIB
     Indication: Rheumatoid arthritis
     Route: 065
     Dates: start: 201911, end: 202206
  2. BARICITINIB [Suspect]
     Active Substance: BARICITINIB
     Route: 048
     Dates: start: 202311

REACTIONS (1)
  - Lung disorder [Unknown]
